FAERS Safety Report 13839064 (Version 1)
Quarter: 2017Q3

REPORT INFORMATION
  Report Type: Spontaneous
  Country: US (occurrence: US)
  Receive Date: 20170805
  Receipt Date: 20170805
  Transmission Date: 20171127
  Serious: Yes (Hospitalization)
  Sender: FDA-Public Use
  Company Number: None

PATIENT
  Age: 71 Year
  Sex: Female
  Weight: 66.3 kg

DRUGS (12)
  1. MEDICAL CANNABIS [Concomitant]
     Active Substance: CANNABIS SATIVA SUBSP. INDICA TOP
  2. ZOFRAN [Concomitant]
     Active Substance: ONDANSETRON HYDROCHLORIDE
  3. NORVASC [Concomitant]
     Active Substance: AMLODIPINE BESYLATE
  4. HYDROMORPHONE (DILAUDID) [Concomitant]
  5. ATIVAN [Concomitant]
     Active Substance: LORAZEPAM
  6. LOSARTAN (COZAAR) [Concomitant]
  7. LIPITOR [Concomitant]
     Active Substance: ATORVASTATIN CALCIUM
  8. DECADRON [Concomitant]
     Active Substance: DEXAMETHASONE
  9. APIXABAN 5 MG BRISTOL MYERS SQUIBB CO [Suspect]
     Active Substance: APIXABAN
     Indication: PULMONARY EMBOLISM
     Route: 048
     Dates: start: 20170327
  10. CALCIUM CARB-ERGOCALCIFEROL [Concomitant]
  11. CHOLECALCIFEROL (VITAMIN D3) [Concomitant]
  12. METHYLPREDNISOLONE. [Concomitant]
     Active Substance: METHYLPREDNISOLONE

REACTIONS (2)
  - Arthralgia [None]
  - Back pain [None]

NARRATIVE: CASE EVENT DATE: 20170803
